FAERS Safety Report 7934727-1 (Version None)
Quarter: 2011Q4

REPORT INFORMATION
  Report Type: 
  Country: None (occurrence: None)
  Receive Date: 20111122
  Receipt Date: 20111116
  Transmission Date: 20120403
  Serious: Yes (Death)
  Sender: FDA-Public Use
  Company Number: US-ASTRAZENECA-2011SE70068

PATIENT
  Age: 64 Year
  Sex: Female
  Weight: 48.1 kg

DRUGS (7)
  1. SEROQUEL [Suspect]
     Indication: ANXIETY
     Route: 048
  2. SEROQUEL [Suspect]
     Route: 048
  3. ZOLOFT [Concomitant]
  4. SYMVASTIN [Concomitant]
  5. CLONIDINE [Concomitant]
     Indication: HEART RATE ABNORMAL
  6. SEROQUEL [Suspect]
     Route: 048
     Dates: start: 20110101
  7. CLONIPINE [Concomitant]

REACTIONS (2)
  - POOR QUALITY SLEEP [None]
  - DRUG INEFFECTIVE [None]
